FAERS Safety Report 15943733 (Version 4)
Quarter: 2019Q2

REPORT INFORMATION
  Report Type: Report from Study
  Country: US (occurrence: US)
  Receive Date: 20190210
  Receipt Date: 20190417
  Transmission Date: 20190711
  Serious: Yes (Hospitalization, Other)
  Sender: FDA-Public Use
  Company Number: PHHY2019US029223

PATIENT
  Age: 35 Year
  Sex: Female

DRUGS (3)
  1. AFINITOR [Suspect]
     Active Substance: EVEROLIMUS
     Dosage: 10 MG, DAILY
     Route: 048
     Dates: start: 20180907
  2. AFINITOR [Suspect]
     Active Substance: EVEROLIMUS
     Indication: METASTATIC RENAL CELL CARCINOMA
     Dosage: UNK
     Route: 048
     Dates: start: 20180810
  3. AFINITOR [Suspect]
     Active Substance: EVEROLIMUS
     Dosage: UNK
     Route: 048
     Dates: start: 20181125

REACTIONS (17)
  - Arthralgia [Unknown]
  - Metastases to peritoneum [Unknown]
  - Anaemia [Unknown]
  - Pneumonia [Unknown]
  - Adrenal cyst [Unknown]
  - Sinus tachycardia [Unknown]
  - Pneumonitis [Unknown]
  - Ovarian cyst [Unknown]
  - Rhinorrhoea [Unknown]
  - Renal cell carcinoma [Unknown]
  - Lung infection [Recovered/Resolved]
  - Pyrexia [Unknown]
  - Dyspnoea [Unknown]
  - Fatigue [Unknown]
  - Productive cough [Unknown]
  - Pain in extremity [Unknown]
  - Hepatic lesion [Unknown]

NARRATIVE: CASE EVENT DATE: 20181101
